FAERS Safety Report 11574330 (Version 1)
Quarter: 2015Q3

REPORT INFORMATION
  Report Type: Spontaneous
  Country: US (occurrence: None)
  Receive Date: 20150928
  Receipt Date: 20150928
  Transmission Date: 20151125
  Serious: Yes (Hospitalization)
  Sender: FDA-Public Use
  Company Number: None

PATIENT
  Age: 67 Year
  Sex: Male
  Weight: 99.4 kg

DRUGS (16)
  1. LOPID [Concomitant]
     Active Substance: GEMFIBROZIL
  2. SIMBRINTA [Concomitant]
  3. LIPITOR [Concomitant]
     Active Substance: ATORVASTATIN CALCIUM
  4. JANUVIA [Concomitant]
     Active Substance: SITAGLIPTIN PHOSPHATE
  5. PRINZIDE [Concomitant]
     Active Substance: HYDROCHLOROTHIAZIDE\LISINOPRIL
  6. EMLA [Concomitant]
     Active Substance: LIDOCAINE\PRILOCAINE
  7. CENTRUM SILVER [Concomitant]
     Active Substance: VITAMINS
  8. FOLFOX [Suspect]
     Active Substance: FLUOROURACIL\LEUCOVORIN CALCIUM\OXALIPLATIN
     Indication: COLON CANCER
     Dosage: Q2W
     Route: 042
     Dates: start: 20150727
  9. DECADRON [Concomitant]
     Active Substance: DEXAMETHASONE
  10. PROTONIX [Concomitant]
     Active Substance: PANTOPRAZOLE SODIUM
  11. ACTOPLUS MET [Concomitant]
     Active Substance: METFORMIN HYDROCHLORIDE\PIOGLITAZONE HYDROCHLORIDE
  12. AVASTIN [Suspect]
     Active Substance: BEVACIZUMAB
     Indication: COLON CANCER
     Dosage: Q2W
     Route: 042
     Dates: start: 20150727
  13. NORVASC [Concomitant]
     Active Substance: AMLODIPINE BESYLATE
  14. GLUCOTROL [Concomitant]
     Active Substance: GLIPIZIDE
  15. ZESTROVATIC [Concomitant]
  16. ALAVI [Concomitant]

REACTIONS (4)
  - Peritonitis [None]
  - Intestinal perforation [None]
  - Pneumoperitoneum [None]
  - Sepsis [None]

NARRATIVE: CASE EVENT DATE: 20150914
